FAERS Safety Report 13185872 (Version 4)
Quarter: 2017Q2

REPORT INFORMATION
  Report Type: Report from Study
  Country: FR (occurrence: FR)
  Receive Date: 20170204
  Receipt Date: 20170510
  Transmission Date: 20170830
  Serious: Yes (Other)
  Sender: FDA-Public Use
  Company Number: PHHO2017FR001581

PATIENT
  Age: 77 Year
  Sex: Male
  Weight: 81 kg

DRUGS (32)
  1. IXPRIM [Concomitant]
     Active Substance: ACETAMINOPHEN\TRAMADOL HYDROCHLORIDE
     Dosage: 1 DF, UNK
     Route: 065
     Dates: start: 20141211
  2. GABAPENTINE [Concomitant]
     Active Substance: GABAPENTIN
     Dosage: 1 DF, UNK (600)
     Route: 065
     Dates: start: 20140724, end: 20140820
  3. ZYMAD [Concomitant]
     Active Substance: CHOLECALCIFEROL
     Indication: VITAMIN SUPPLEMENTATION
     Dosage: 1 DF (80000), EVERY 15 DAYS
     Route: 065
     Dates: start: 20140528
  4. UROREC [Concomitant]
     Active Substance: SILODOSIN
     Indication: PROSTATIC ADENOMA
     Dosage: 1 DF, UNK (8)
     Route: 065
     Dates: start: 20140528
  5. CYMBALTA [Concomitant]
     Active Substance: DULOXETINE HYDROCHLORIDE
     Indication: PAIN IN EXTREMITY
     Dosage: 1 DF, UNK (60)
     Route: 065
     Dates: start: 20140717, end: 20140918
  6. OXYNORM [Concomitant]
     Active Substance: OXYCODONE HYDROCHLORIDE
     Indication: PAIN IN EXTREMITY
     Dosage: 1 DF, UNK (5)
     Route: 065
     Dates: start: 20140724
  7. XANAX [Concomitant]
     Active Substance: ALPRAZOLAM
     Indication: ANXIETY
     Dosage: 1 DF, UNK (0.125)
     Route: 065
     Dates: start: 20140919
  8. GABAPENTINE [Concomitant]
     Active Substance: GABAPENTIN
     Dosage: 1 DF, UNK (666.66)
     Dates: start: 20130531, end: 20130821
  9. GABAPENTINE [Concomitant]
     Active Substance: GABAPENTIN
     Dosage: 1 DF, UNK (500)
     Dates: start: 20140403, end: 20140723
  10. FERO-GRAD [Concomitant]
     Indication: ANAEMIA
     Dosage: 1 DF, UNK (500)
     Route: 065
     Dates: start: 20140528, end: 20140918
  11. ARANESP [Concomitant]
     Active Substance: DARBEPOETIN ALFA
     Indication: PRODUCT USED FOR UNKNOWN INDICATION
     Route: 065
  12. LBH589 [Suspect]
     Active Substance: PANOBINOSTAT
     Indication: PRIMARY MYELOFIBROSIS
     Dosage: 10 MG, TIW
     Route: 048
     Dates: start: 20150528
  13. INC424 [Suspect]
     Active Substance: RUXOLITINIB
     Indication: PRIMARY MYELOFIBROSIS
     Dosage: 30 MG, BID
     Route: 048
     Dates: start: 20120530
  14. GABAPENTINE [Concomitant]
     Active Substance: GABAPENTIN
     Indication: PAIN IN EXTREMITY
     Dosage: 1 DF, UNK (900)
     Route: 065
     Dates: start: 20121114, end: 20130530
  15. UVEDOSE [Concomitant]
     Active Substance: CHOLECALCIFEROL
     Dosage: 1 DF, UNK (100000)
     Route: 065
     Dates: start: 20130919
  16. CACIT [Concomitant]
     Active Substance: CALCIUM\VITAMIN D
     Indication: PROPHYLAXIS
     Dosage: 1 DF, UNK (500)
     Route: 065
     Dates: start: 20140528
  17. ELEVIT [Concomitant]
     Active Substance: FOLIC ACID\IRON\MINERALS\VITAMINS
     Indication: VITAMIN SUPPLEMENTATION
     Dosage: 1 DF, UNK
     Route: 065
     Dates: start: 20140919
  18. GABAPENTINE [Concomitant]
     Active Substance: GABAPENTIN
     Dosage: 1 DF, UNK (500)
     Route: 065
     Dates: start: 20140821, end: 20140917
  19. ZAMUDOL [Concomitant]
     Active Substance: TRAMADOL HYDROCHLORIDE
     Indication: PAIN IN EXTREMITY
     Dosage: 1 DF, UNK (125)
     Route: 065
     Dates: start: 20130822, end: 20140402
  20. PARACETAMOL [Concomitant]
     Active Substance: ACETAMINOPHEN
     Indication: PAIN IN EXTREMITY
     Dosage: 1 DF, UNK
     Route: 065
     Dates: start: 20140403
  21. TOPALGIC (FRANCE) [Concomitant]
     Active Substance: TRAMADOL
     Dosage: 1 DF, UNK (100)
     Route: 065
     Dates: start: 20141211
  22. NORDAZ [Concomitant]
     Active Substance: NORDAZEPAM
     Indication: ANXIETY
     Dosage: 1 DF, UNK (7.5)
     Route: 065
     Dates: start: 20140528, end: 20140716
  23. NORDAZ [Concomitant]
     Active Substance: NORDAZEPAM
     Dosage: 1 DF, UNK (15)
     Route: 065
     Dates: start: 20140717, end: 20140918
  24. DEBRIDAT [Concomitant]
     Active Substance: TRIMEBUTINE MALEATE
     Indication: PROPHYLAXIS
     Dosage: 1 DF, UNK (100)
     Route: 065
     Dates: start: 20120530
  25. UVEDOSE [Concomitant]
     Active Substance: CHOLECALCIFEROL
     Indication: VITAMIN D DEFICIENCY
     Dosage: 1 DF, UNK (100000)
     Route: 065
     Dates: start: 20130530, end: 20130918
  26. TOPALGIC (FRANCE) [Concomitant]
     Active Substance: TRAMADOL
     Indication: PAIN IN EXTREMITY
     Dosage: 1 DF, UNK (100)
     Route: 065
     Dates: start: 20140403, end: 20141210
  27. GABAPENTINE [Concomitant]
     Active Substance: GABAPENTIN
     Dosage: 1 DF, UNK (600)
     Route: 065
     Dates: start: 20130822, end: 20140402
  28. OXYCONTIN [Concomitant]
     Active Substance: OXYCODONE HYDROCHLORIDE
     Indication: PAIN IN EXTREMITY
     Dosage: 1 DF, UNK
     Route: 065
     Dates: start: 20140724, end: 20140917
  29. OXYCONTIN [Concomitant]
     Active Substance: OXYCODONE HYDROCHLORIDE
     Dosage: 1 DF, UNK (10)
     Route: 065
     Dates: start: 20140918
  30. IXPRIM [Concomitant]
     Active Substance: ACETAMINOPHEN\TRAMADOL HYDROCHLORIDE
     Indication: PAIN PROPHYLAXIS
     Dosage: 1 DF, UNK (37.5/325)
     Route: 065
     Dates: start: 20130530, end: 20140403
  31. ZAMUDOL [Concomitant]
     Active Substance: TRAMADOL HYDROCHLORIDE
     Dosage: 1 DF, UNK (150)
     Route: 065
     Dates: start: 20140403, end: 20140918
  32. AVLOCARDYL [Concomitant]
     Active Substance: PROPRANOLOL HYDROCHLORIDE
     Indication: PROPHYLAXIS
     Dosage: 1 DF, UNK (10)
     Route: 065
     Dates: start: 20140228

REACTIONS (1)
  - Basal cell carcinoma [Recovered/Resolved]

NARRATIVE: CASE EVENT DATE: 20150926
